FAERS Safety Report 6434341-3 (Version None)
Quarter: 2009Q4

REPORT INFORMATION
  Report Type: 
  Country: None (occurrence: None)
  Receive Date: 20091110
  Receipt Date: 20090713
  Transmission Date: 20100525
  Serious: No
  Sender: FDA-Public Use
  Company Number: US-ASTRAZENECA-2009SE10300

PATIENT
  Sex: Female

DRUGS (3)
  1. PRILOSEC OTC [Suspect]
     Indication: GASTRIC DISORDER
     Dosage: 1 TABLET, 1 /DAY
     Route: 048
  2. LOVAZA [Concomitant]
     Dosage: UNK DOSE, 2 /DAY
     Route: 048
  3. CALCIUM [Concomitant]
     Dosage: UNKNOWN

REACTIONS (2)
  - ALOPECIA [None]
  - INCORRECT DRUG ADMINISTRATION DURATION [None]
